FAERS Safety Report 8983776 (Version 1)
Quarter: 2012Q4

REPORT INFORMATION
  Report Type: 
  Country: FR (occurrence: FR)
  Receive Date: 20121224
  Receipt Date: 20121224
  Transmission Date: 20130627
  Serious: Yes (Other)
  Sender: FDA-Public Use
  Company Number: FR-ROCHE-1168827

PATIENT
  Age: 70 Year
  Sex: Female

DRUGS (4)
  1. COPEGUS [Suspect]
     Indication: CHRONIC HEPATITIS C
     Route: 048
     Dates: start: 20120420
  2. PEGASYS [Suspect]
     Indication: CHRONIC HEPATITIS C
     Dosage: 180 mcg
     Route: 058
     Dates: start: 20120420
  3. NEORECORMON [Suspect]
     Indication: ANAEMIA
     Route: 058
     Dates: start: 20120420
  4. INCIVO [Suspect]
     Indication: CHRONIC HEPATITIS C
     Route: 048
     Dates: start: 20120420, end: 20120710

REACTIONS (3)
  - Rash generalised [Recovered/Resolved]
  - Rash macular [Recovered/Resolved]
  - Dermatitis exfoliative [Recovered/Resolved]
